FAERS Safety Report 5376168-X (Version None)
Quarter: 2007Q2

REPORT INFORMATION
  Report Type: 
  Country: None (occurrence: None)
  Receive Date: 20070628
  Receipt Date: 20070614
  Transmission Date: 20071010
  Serious: Yes (Hospitalization, Other)
  Sender: FDA-Public Use
  Company Number: 100#08#2005-00679

PATIENT
  Age: 58 Year
  Sex: Male

DRUGS (7)
  1. SIMVASTATIN [Suspect]
     Indication: HYPERCHOLESTEROLAEMIA
  2. PRAVASTATIN [Suspect]
     Indication: HYPERCHOLESTEROLAEMIA
  3. AMLODIPINE (AMLODIPINE) (AMLODIPINE) [Concomitant]
  4. BISOPROLOL FUMARATE [Concomitant]
  5. RAMIPRIL (RAMIPRIL) (RAMIPRIL) [Concomitant]
  6. SPIRONOLACTONE [Concomitant]
  7. WARFARIN SODIUM [Concomitant]

REACTIONS (12)
  - BLOOD CREATINE INCREASED [None]
  - BLOOD UREA INCREASED [None]
  - CSF PROTEIN INCREASED [None]
  - DYSPNOEA [None]
  - EOSINOPHILIA [None]
  - GUILLAIN-BARRE SYNDROME [None]
  - HAEMOGLOBIN DECREASED [None]
  - HYPONATRAEMIA [None]
  - INTERNATIONAL NORMALISED RATIO INCREASED [None]
  - POLYNEUROPATHY CHRONIC [None]
  - RECTAL HAEMORRHAGE [None]
  - SENSORY LOSS [None]
